FAERS Safety Report 11748513 (Version 1)
Quarter: 2015Q4

REPORT INFORMATION
  Report Type: Report from Study
  Country: BR (occurrence: BR)
  Receive Date: 20151117
  Receipt Date: 20151117
  Transmission Date: 20160304
  Serious: Yes (Hospitalization, Other)
  Sender: FDA-Public Use
  Company Number: BR-BRISTOL-MYERS SQUIBB COMPANY-BMS-2015-074547

PATIENT
  Sex: Female
  Weight: 51 kg

DRUGS (1)
  1. CETUXIMAB [Suspect]
     Active Substance: CETUXIMAB
     Indication: COLORECTAL CANCER
     Dosage: 1 DF, UNK
     Route: 042
     Dates: start: 201508, end: 20150925

REACTIONS (8)
  - Pruritus generalised [Unknown]
  - Surgery [Unknown]
  - Vomiting [Unknown]
  - Generalised erythema [Unknown]
  - Hepatic neoplasm [Unknown]
  - Pulmonary mass [Unknown]
  - Infection [Unknown]
  - Diarrhoea [Unknown]
